FAERS Safety Report 6506408-2 (Version None)
Quarter: 2009Q4

REPORT INFORMATION
  Report Type: 
  Country: None (occurrence: None)
  Receive Date: 20091219
  Receipt Date: 20091209
  Transmission Date: 20100525
  Serious: Yes (Hospitalization)
  Sender: FDA-Public Use
  Company Number: NL-MEDIMMUNE-MEDI-0009877

PATIENT
  Sex: Male

DRUGS (2)
  1. SYNAGIS [Suspect]
     Route: 030
     Dates: start: 20091015, end: 20091111
  2. SYNAGIS [Suspect]
     Dates: start: 20091209, end: 20091209

REACTIONS (1)
  - CHEST X-RAY ABNORMAL [None]
